FAERS Safety Report 23227385 (Version 2)
Quarter: 2024Q1

REPORT INFORMATION
  Report Type: Spontaneous
  Country: US (occurrence: US)
  Receive Date: 20231124
  Receipt Date: 20240212
  Transmission Date: 20240410
  Serious: Yes (Hospitalization, Other)
  Sender: FDA-Public Use
  Company Number: US-PFIZER INC-202300391969

PATIENT
  Age: 59 Year
  Sex: Female
  Weight: 53.968 kg

DRUGS (3)
  1. PAXLOVID [Suspect]
     Active Substance: NIRMATRELVIR\RITONAVIR
     Indication: COVID-19 treatment
     Dosage: 300 MG, 2X/DAY (THREE PILLS IN THE MORNING AND THREE PILLS AT NIGHT)
     Route: 048
     Dates: start: 20231113, end: 20231115
  2. METOPROLOL [Concomitant]
     Active Substance: METOPROLOL
     Indication: Hypertension
     Dosage: UNK, DAILY
     Dates: start: 20230307
  3. OMEPRAZOLE [Concomitant]
     Active Substance: OMEPRAZOLE
     Indication: Hypertension
     Dosage: UNK, DAILY
     Dates: start: 20210210

REACTIONS (4)
  - Hallucination, visual [Recovered/Resolved]
  - Blood pressure increased [Recovered/Resolved]
  - Feeling abnormal [Unknown]
  - Blood potassium decreased [Unknown]

NARRATIVE: CASE EVENT DATE: 20231113
